FAERS Safety Report 7091367-7 (Version None)
Quarter: 2010Q4

REPORT INFORMATION
  Report Type: 
  Country: None (occurrence: None)
  Receive Date: 20101109
  Receipt Date: 20101102
  Transmission Date: 20110411
  Serious: Yes (Other)
  Sender: FDA-Public Use
  Company Number: A0883532A

PATIENT
  Age: 72 Year
  Sex: Male
  Weight: 90.9 kg

DRUGS (10)
  1. AVODART [Suspect]
     Indication: BENIGN PROSTATIC HYPERPLASIA
     Dosage: 1CAP PER DAY
     Route: 048
     Dates: start: 20100919, end: 20100925
  2. AMITRIPTYLINE HCL [Concomitant]
  3. PRAVASTATIN [Concomitant]
  4. LISINOPRIL [Concomitant]
  5. ZETIA [Concomitant]
  6. PLAVIX [Concomitant]
  7. AMLODIPINE [Concomitant]
  8. FEXOFENADINE HCL [Concomitant]
  9. PAXIL [Concomitant]
  10. PAROXETINE HCL [Concomitant]

REACTIONS (9)
  - ABDOMINAL DISTENSION [None]
  - ATRIAL FIBRILLATION [None]
  - BREAST ENLARGEMENT [None]
  - DRUG HYPERSENSITIVITY [None]
  - EYE SWELLING [None]
  - HYPERSENSITIVITY [None]
  - OEDEMA [None]
  - OEDEMA PERIPHERAL [None]
  - SWELLING [None]
